FAERS Safety Report 9249793 (Version 3)
Quarter: 2013Q2

REPORT INFORMATION
  Report Type: Spontaneous
  Country: IT (occurrence: FR)
  Receive Date: 20130423
  Receipt Date: 20130614
  Transmission Date: 20140414
  Serious: Yes (Life-Threatening, Hospitalization)
  Sender: FDA-Public Use
  Company Number: FR-FRI-1000044532

PATIENT
  Age: 27 Year
  Sex: Female
  Weight: 54 kg

DRUGS (3)
  1. FOSFOMYCIN [Suspect]
     Indication: CYSTITIS
     Dosage: 3 GRAM
     Route: 048
     Dates: start: 20121125, end: 20121125
  2. JASMINELLE [Concomitant]
     Indication: CONTRACEPTION
  3. GYNDELTA [Concomitant]
     Indication: MEDICAL DIET

REACTIONS (2)
  - Hyponatraemia [Recovered/Resolved]
  - Convulsion [Recovered/Resolved]
